FAERS Safety Report 9236872 (Version 2)
Quarter: 2013Q3

REPORT INFORMATION
  Report Type: Spontaneous
  Country: PL (occurrence: None)
  Receive Date: 20130415
  Receipt Date: 20130715
  Transmission Date: 20140515
  Serious: No
  Sender: FDA-Public Use
  Company Number: 221102

PATIENT
  Age: 22 Year
  Sex: Male

DRUGS (2)
  1. DAIVONEX [Suspect]
     Indication: PRODUCT USED FOR UNKNOWN INDICATION
     Dosage: 30 G TUBE ENOUGH FOR 2 TO 3 MONTHS, TOPICAL
  2. DAIVONEX [Suspect]
     Indication: PSORIASIS
     Dosage: 30 G TUBE ENOUGH FOR 2 TO 3 MONTHS, TOPICAL

REACTIONS (3)
  - Crystal urine present [None]
  - Incorrect drug administration duration [None]
  - Skin disorder [None]
